FAERS Safety Report 8848254 (Version 1)
Quarter: 2012Q4

REPORT INFORMATION
  Report Type: 
  Country: US (occurrence: US)
  Receive Date: 20121018
  Receipt Date: 20121018
  Transmission Date: 20130627
  Serious: Yes (Other)
  Sender: FDA-Public Use
  Company Number: US-ROCHE-1139722

PATIENT
  Sex: Female

DRUGS (2)
  1. PROTROPIN [Suspect]
     Indication: FAILURE TO THRIVE
     Route: 058
     Dates: start: 199404
  2. PROTROPIN [Suspect]
     Indication: DWARFISM

REACTIONS (3)
  - Rickets [Unknown]
  - Muscle spasms [Unknown]
  - Knee deformity [Unknown]
